FAERS Safety Report 6606453-2 (Version None)
Quarter: 2010Q1

REPORT INFORMATION
  Report Type: 
  Country: None (occurrence: None)
  Receive Date: 20100226
  Receipt Date: 20100215
  Transmission Date: 20100710
  Serious: Yes (Hospitalization)
  Sender: FDA-Public Use
  Company Number: PHHY2009MX58479

PATIENT
  Age: 59 Year
  Sex: Male

DRUGS (1)
  1. CO-DIOVAN [Suspect]
     Dosage: 1 TABLET (160/12.5MG) PER DAY
     Route: 048
     Dates: start: 20090801

REACTIONS (4)
  - ABDOMINAL PAIN UPPER [None]
  - GASTRITIS [None]
  - GASTROINTESTINAL ULCER [None]
  - HELICOBACTER INFECTION [None]
